FAERS Safety Report 4583316-8 (Version None)
Quarter: 2005Q1

REPORT INFORMATION
  Report Type: 
  Country: None (occurrence: None)
  Receive Date: 20050125
  Receipt Date: 20041006
  Transmission Date: 20050727
  Serious: No
  Sender: FDA-Public Use
  Company Number: USA040465114

PATIENT
  Age: 79 Year
  Sex: Female
  Weight: 57 kg

DRUGS (8)
  1. FORTEO [Suspect]
     Indication: OSTEOPOROSIS
     Dates: start: 20040329
  2. BEXTRA [Concomitant]
  3. ZOLOFT [Concomitant]
  4. ZYDONE [Concomitant]
  5. FOLIC ACID [Concomitant]
  6. VITAMIN E [Concomitant]
  7. OSCAL 500-D [Concomitant]
  8. IRON [Concomitant]

REACTIONS (3)
  - BACK PAIN [None]
  - DRUG INEFFECTIVE [None]
  - NAUSEA [None]
